FAERS Safety Report 7126352-X (Version None)
Quarter: 2010Q4

REPORT INFORMATION
  Report Type: 
  Country: None (occurrence: None)
  Receive Date: 20101129
  Receipt Date: 20101103
  Transmission Date: 20110411
  Serious: Yes (Hospitalization)
  Sender: FDA-Public Use
  Company Number: BR-US-EMD SERONO, INC.-7028779

PATIENT
  Sex: Female

DRUGS (9)
  1. REBIF [Suspect]
     Indication: PRIMARY PROGRESSIVE MULTIPLE SCLEROSIS
     Dates: start: 20100224
  2. CLONAZEPAM [Suspect]
  3. CAPTOPRIL [Concomitant]
  4. TRAMADOL HCL [Concomitant]
  5. STUGERON [Concomitant]
  6. CARBAMAZEPINE [Concomitant]
  7. LOVAZA [Concomitant]
  8. CITALOPRAM HYDROBROMIDE [Concomitant]
  9. PANTOPRAZOLE [Concomitant]

REACTIONS (3)
  - OFF LABEL USE [None]
  - PAIN IN EXTREMITY [None]
  - VISION BLURRED [None]
